FAERS Safety Report 10224490 (Version 1)
Quarter: 2014Q2

REPORT INFORMATION
  Report Type: Spontaneous
  Country: FR (occurrence: FR)
  Receive Date: 20140609
  Receipt Date: 20140609
  Transmission Date: 20141212
  Serious: Yes (Hospitalization)
  Sender: FDA-Public Use
  Company Number: FR-SA-2014SA069885

PATIENT
  Age: 73 Year
  Sex: Female

DRUGS (6)
  1. TAXOTERE [Suspect]
     Indication: PRODUCT USED FOR UNKNOWN INDICATION
     Route: 042
     Dates: start: 20131219, end: 20131219
  2. INNOHEP [Concomitant]
  3. SECTRAL [Concomitant]
  4. LEVOTHYROX [Concomitant]
  5. ARANESP [Concomitant]
  6. TETRAZEPAM [Concomitant]

REACTIONS (2)
  - Lung disorder [Recovered/Resolved]
  - Hypoxia [Recovered/Resolved]
